FAERS Safety Report 24136916 (Version 2)
Quarter: 2024Q3

REPORT INFORMATION
  Report Type: Spontaneous
  Country: US (occurrence: US)
  Receive Date: 20240725
  Receipt Date: 20240816
  Transmission Date: 20241016
  Serious: No
  Sender: BRISTOL MYERS SQUIBB
  Company Number: US-BRISTOL-MYERS SQUIBB COMPANY-2024-118107

PATIENT
  Age: 69 Year
  Sex: Female
  Weight: 114.76 kg

DRUGS (2)
  1. REVLIMID [Suspect]
     Active Substance: LENALIDOMIDE
     Indication: Plasma cell myeloma
     Route: 048
  2. REVLIMID [Suspect]
     Active Substance: LENALIDOMIDE
     Dosage: 3WKS ON 1 WK OFF
     Route: 048
     Dates: start: 20240701

REACTIONS (3)
  - Blood pressure decreased [Recovering/Resolving]
  - Oral pain [Recovering/Resolving]
  - Peripheral swelling [Unknown]
